FAERS Safety Report 25008833 (Version 1)
Quarter: 2025Q1

REPORT INFORMATION
  Report Type: Spontaneous
  Country: US (occurrence: None)
  Receive Date: 20250224
  Receipt Date: 20250224
  Transmission Date: 20250409
  Serious: No
  Sender: FDA-CTU
  Company Number: None

PATIENT
  Age: 28 Year
  Sex: Female
  Weight: 172 kg

DRUGS (2)
  1. ROCEPHIN [Suspect]
     Active Substance: CEFTRIAXONE SODIUM
     Indication: Mastitis
     Route: 030
     Dates: start: 20250222, end: 20250222
  2. CEPHALEXIN [Suspect]
     Active Substance: CEPHALEXIN
     Dates: start: 20250222, end: 20250223

REACTIONS (3)
  - Rash macular [None]
  - Rash pruritic [None]
  - Swelling [None]

NARRATIVE: CASE EVENT DATE: 20250223
